FAERS Safety Report 6575218-2 (Version None)
Quarter: 2010Q1

REPORT INFORMATION
  Report Type: 
  Country: None (occurrence: None)
  Receive Date: 20100202
  Receipt Date: 20100122
  Transmission Date: 20100710
  Serious: Yes (Hospitalization)
  Sender: FDA-Public Use
  Company Number: 2010SP005029

PATIENT
  Age: 57 Year
  Sex: Male

DRUGS (14)
  1. K-DUR [Suspect]
     Indication: DRUG USE FOR UNKNOWN INDICATION
     Dosage: 10 MEQ; PO
     Route: 048
  2. FUROSEMIDE [Suspect]
     Indication: DRUG USE FOR UNKNOWN INDICATION
     Dosage: 40 MG; PO
     Route: 048
  3. OMNIPAQUE 140 [Suspect]
     Indication: COMPUTERISED TOMOGRAM
     Dosage: 120 ML; ONCE; IV
     Route: 042
     Dates: start: 20090803, end: 20090803
  4. POTASSIUM CHLORIDE [Suspect]
     Indication: PANCREATIC CARCINOMA METASTATIC
     Dates: start: 20090211
  5. GEMCITABINE [Concomitant]
  6. SPIRONOLACTONE [Concomitant]
  7. PANCREATIN [Concomitant]
  8. SENNA CONCENTRATE [Concomitant]
  9. PROCHLORPERAZINE EDISYLATE [Concomitant]
  10. ACETYLSALICYLIC ACID SRT [Concomitant]
  11. OXYCODONE HCL [Concomitant]
  12. HYDROCODONE [Concomitant]
  13. LISINOPRIL [Concomitant]
  14. MIRALAX [Concomitant]

REACTIONS (13)
  - BLOOD CHLORIDE INCREASED [None]
  - BLOOD GLUCOSE FLUCTUATION [None]
  - CARBON DIOXIDE DECREASED [None]
  - CONSTIPATION [None]
  - DIZZINESS [None]
  - ELECTROCARDIOGRAM ABNORMAL [None]
  - GLUCOSE URINE PRESENT [None]
  - HAEMATOCRIT DECREASED [None]
  - HAEMOGLOBIN DECREASED [None]
  - HYPERKALAEMIA [None]
  - HYPOTENSION [None]
  - MUSCLE SPASMS [None]
  - RENAL FAILURE ACUTE [None]
